FAERS Safety Report 13350345 (Version 2)
Quarter: 2017Q1

REPORT INFORMATION
  Report Type: Report from Study
  Country: None (occurrence: AU)
  Receive Date: 20170320
  Receipt Date: 20170329
  Transmission Date: 20170429
  Serious: Yes (Hospitalization)
  Sender: FDA-Public Use
  Company Number: AU-ABBVIE-17P-008-1903677-00

PATIENT
  Age: 72 Year
  Sex: Male

DRUGS (2)
  1. HUMIRA [Suspect]
     Active Substance: ADALIMUMAB
     Indication: CROHN^S DISEASE
     Route: 058
  2. HUMIRA [Suspect]
     Active Substance: ADALIMUMAB
     Route: 058
     Dates: start: 20170309

REACTIONS (5)
  - Large intestine perforation [Unknown]
  - Flatulence [Unknown]
  - Intestinal scarring [Recovered/Resolved]
  - Gastrointestinal wall thickening [Unknown]
  - Anal incontinence [Unknown]

NARRATIVE: CASE EVENT DATE: 20170222
